FAERS Safety Report 22047434 (Version 2)
Quarter: 2023Q1

REPORT INFORMATION
  Report Type: Report from Study
  Country: DE (occurrence: None)
  Receive Date: 20230301
  Receipt Date: 20230302
  Transmission Date: 20230418
  Serious: Yes (Hospitalization)
  Sender: FDA-Public Use
  Company Number: DE-ROCHE-3193977

PATIENT
  Age: 47 Year
  Sex: Female

DRUGS (10)
  1. TRASTUZUMAB [Suspect]
     Active Substance: TRASTUZUMAB
     Indication: Breast cancer metastatic
     Dosage: DATE OF LAST DOSE PRIOR TO SAE: 27/FEB/2020
     Route: 042
     Dates: start: 20200227
  2. PERTUZUMAB [Suspect]
     Active Substance: PERTUZUMAB
     Indication: Breast cancer metastatic
     Dosage: DATE OF LAST DOSE PRIOR TO SAE: 27/FEB/2020
     Route: 042
     Dates: start: 20200227
  3. CANDESARTAN [Concomitant]
     Active Substance: CANDESARTAN
  4. DEXAMETHASONE [Concomitant]
     Active Substance: DEXAMETHASONE
     Dates: start: 20200227
  5. JANUVIA [Concomitant]
     Active Substance: SITAGLIPTIN PHOSPHATE
  6. LETROZOLE [Concomitant]
     Active Substance: LETROZOLE
     Dates: start: 20200722
  7. METFORMIN [Concomitant]
     Active Substance: METFORMIN HYDROCHLORIDE
  8. METOPROLOL [Concomitant]
     Active Substance: METOPROLOL
     Dates: start: 20200506
  9. XGEVA [Concomitant]
     Active Substance: DENOSUMAB
     Dates: start: 20200319
  10. ZOLADEX [Concomitant]
     Active Substance: GOSERELIN ACETATE
     Dates: start: 20200722

REACTIONS (1)
  - Gastroenteritis astroviral [Recovered/Resolved]

NARRATIVE: CASE EVENT DATE: 20200301
